FAERS Safety Report 21909397 (Version 1)
Quarter: 2023Q1

REPORT INFORMATION
  Report Type: Spontaneous
  Country: CA (occurrence: CA)
  Receive Date: 20230125
  Receipt Date: 20230125
  Transmission Date: 20230418
  Serious: No
  Sender: FDA-Public Use
  Company Number: CA-PFIZER INC-202300008484

PATIENT
  Age: 78 Year
  Sex: Female

DRUGS (4)
  1. PAXLOVID [Suspect]
     Active Substance: NIRMATRELVIR\RITONAVIR
     Indication: COVID-19 treatment
     Dosage: [PF-07321332 300 MG]/[RITONAVIR 100 MG]; 2X/DAY
     Route: 048
     Dates: start: 20221227, end: 20230102
  2. VAGIFEM [Concomitant]
     Active Substance: ESTRADIOL
     Dosage: 10 UG
     Dates: start: 20190101, end: 20230107
  3. VAGISIL [BENZOCAINE] [Concomitant]
     Indication: Blood oestrogen decreased
     Dosage: UNK
     Dates: start: 2013
  4. ROSUVASTATIN [Concomitant]
     Active Substance: ROSUVASTATIN
     Indication: Cardiac disorder
     Dosage: 20 MG, 1X/DAY
     Dates: start: 20200702

REACTIONS (4)
  - Nasopharyngitis [Unknown]
  - Disease recurrence [Recovered/Resolved]
  - COVID-19 [Recovered/Resolved]
  - Inappropriate schedule of product administration [Unknown]

NARRATIVE: CASE EVENT DATE: 20221227
